FAERS Safety Report 21383331 (Version 1)
Quarter: 2022Q3

REPORT INFORMATION
  Report Type: Report from Study
  Country: CA (occurrence: CA)
  Receive Date: 20220927
  Receipt Date: 20220927
  Transmission Date: 20221026
  Serious: Yes (Other)
  Sender: FDA-Public Use
  Company Number: CA-ABBVIE-22K-028-4274552-00

PATIENT
  Sex: Female

DRUGS (2)
  1. RINVOQ [Suspect]
     Active Substance: UPADACITINIB
     Indication: Psoriatic arthropathy
     Route: 048
     Dates: start: 20210711
  2. RINVOQ [Suspect]
     Active Substance: UPADACITINIB
     Indication: Psoriatic arthropathy
     Route: 048

REACTIONS (7)
  - Hip surgery [Unknown]
  - Lymphopenia [Not Recovered/Not Resolved]
  - Injury [Unknown]
  - Anaemia [Unknown]
  - Joint injury [Unknown]
  - Musculoskeletal disorder [Unknown]
  - Seborrhoeic keratosis [Recovering/Resolving]

NARRATIVE: CASE EVENT DATE: 20220101
